FAERS Safety Report 11645477 (Version 2)
Quarter: 2015Q4

REPORT INFORMATION
  Report Type: Report from Study
  Country: US (occurrence: US)
  Receive Date: 20151020
  Receipt Date: 20151020
  Transmission Date: 20160304
  Serious: Yes (Other)
  Sender: FDA-Public Use
  Company Number: US-BAYER-2015-446132

PATIENT
  Age: 71 Year
  Sex: Male
  Weight: 102.49 kg

DRUGS (2)
  1. ASPIRIN. [Suspect]
     Active Substance: ASPIRIN
     Indication: THROMBOSIS PROPHYLAXIS
     Dosage: 325 MG, BID
     Dates: start: 20080127
  2. ASPIRIN. [Suspect]
     Active Substance: ASPIRIN
     Indication: KNEE ARTHROPLASTY

REACTIONS (2)
  - Abdominal discomfort [None]
  - Gastrointestinal haemorrhage [None]
